FAERS Safety Report 9470948 (Version 3)
Quarter: 2015Q2

REPORT INFORMATION
  Report Type: Spontaneous
  Country: US (occurrence: US)
  Receive Date: 20130822
  Receipt Date: 20150611
  Transmission Date: 20150821
  Serious: Yes (Life-Threatening, Hospitalization, Congenital Anomaly, Other)
  Sender: FDA-Public Use
  Company Number: US-ELI_LILLY_AND_COMPANY-US201308005440

PATIENT
  Age: 0 Year

DRUGS (4)
  1. MAALOX ANTACID [Concomitant]
     Active Substance: ALUMINUM HYDROXIDE\DIMETHICONE\MAGNESIUM HYDROXIDE
     Route: 064
  2. FERROUS SULFATE [Concomitant]
     Active Substance: FERROUS SULFATE\FERROUS SULFATE, DRIED
  3. PROZAC [Suspect]
     Active Substance: FLUOXETINE HYDROCHLORIDE
     Indication: PRODUCT USED FOR UNKNOWN INDICATION
     Dosage: 20 MG, TID
     Route: 064
  4. BETAMETHASONE [Concomitant]
     Active Substance: BETAMETHASONE
     Route: 064

REACTIONS (28)
  - Foetal exposure during pregnancy [Recovered/Resolved]
  - Apnoeic attack [Recovered/Resolved]
  - Patent ductus arteriosus [Recovered/Resolved]
  - Ventricular septal defect [Unknown]
  - Hypospadias [Recovered/Resolved]
  - Foetal growth restriction [Recovered/Resolved with Sequelae]
  - Inguinal hernia [Recovered/Resolved]
  - Pulmonary arterial hypertension [Recovered/Resolved]
  - Cognitive disorder [Unknown]
  - Body height below normal [Recovering/Resolving]
  - Weight gain poor [Unknown]
  - Atrial septal defect [Unknown]
  - Placental transfusion syndrome [Recovered/Resolved]
  - Growth retardation [Recovering/Resolving]
  - Tic [Unknown]
  - Premature baby [Unknown]
  - Foetal hypokinesia [Recovered/Resolved]
  - Apgar score low [Recovered/Resolved]
  - Foetal heart rate deceleration abnormality [Recovered/Resolved]
  - Congenital coronary artery malformation [Recovering/Resolving]
  - Neonatal respiratory distress syndrome [Recovered/Resolved with Sequelae]
  - Bronchopulmonary dysplasia [Unknown]
  - Microcephaly [Unknown]
  - Developmental delay [Unknown]
  - Oligohydramnios [Recovered/Resolved]
  - Obsessive-compulsive disorder [Unknown]
  - Failure to thrive [Unknown]
  - Congenital anaemia [Recovered/Resolved]

NARRATIVE: CASE EVENT DATE: 20000628
